FAERS Safety Report 4947695-1 (Version None)
Quarter: 2006Q1

REPORT INFORMATION
  Report Type: 
  Country: None (occurrence: None)
  Receive Date: 20060313
  Receipt Date: 20060303
  Transmission Date: 20060701
  Serious: Yes (Hospitalization)
  Sender: FDA-Public Use
  Company Number: 2006-03-0088

PATIENT
  Age: 57 Year
  Sex: Female
  Weight: 65 kg

DRUGS (2)
  1. RIBAVIRIN [Suspect]
     Indication: HEPATITIS C
     Dosage: 1000 MG ORAL
     Route: 048
     Dates: start: 20051021, end: 20060216
  2. INFERAX (INTERFERON ALFACON-1) INJECTABLE [Suspect]
     Indication: HEPATITIS C
     Dosage: 9 MCG QD SUBCUTANEOUS
     Route: 058
     Dates: start: 20051021, end: 20060216

REACTIONS (1)
  - RETINAL VEIN THROMBOSIS [None]
